FAERS Safety Report 15097490 (Version 1)
Quarter: 2018Q3

REPORT INFORMATION
  Report Type: Spontaneous
  Country: GR (occurrence: GR)
  Receive Date: 20180702
  Receipt Date: 20180702
  Transmission Date: 20181010
  Serious: Yes (Hospitalization)
  Sender: FDA-Public Use
  Company Number: GR-GLAXOSMITHKLINE-B1015480A

PATIENT
  Sex: Female

DRUGS (7)
  1. BETAMETHASONE. [Suspect]
     Active Substance: BETAMETHASONE
     Indication: PRODUCT USED FOR UNKNOWN INDICATION
     Dosage: 12 MG IM WITH A REPEATED DOSE AT 24 H
     Route: 064
  2. METRONIDAZOLE. [Suspect]
     Active Substance: METRONIDAZOLE
     Indication: PRODUCT USED FOR UNKNOWN INDICATION
     Dosage: EIGHT HOURLY FOR 10 DAYS
     Route: 064
  3. BETADINE [Suspect]
     Active Substance: POVIDONE-IODINE
     Indication: PRODUCT USED FOR UNKNOWN INDICATION
     Route: 064
  4. AMOXICILLIN. [Suspect]
     Active Substance: AMOXICILLIN
     Indication: PRODUCT USED FOR UNKNOWN INDICATION
     Dosage: EIGHT HOURLY FOR 10 DAYS
     Route: 064
  5. CEFUROXIME. [Suspect]
     Active Substance: CEFUROXIME
     Indication: ENTEROBACTER INFECTION
     Dosage: 750 MG, TID
     Route: 064
  6. THYROXINE [Suspect]
     Active Substance: LEVOTHYROXINE
     Indication: HYPOTHYROIDISM
     Dosage: 175 UG, BID
     Route: 064
  7. BETAMETHASONE. [Suspect]
     Active Substance: BETAMETHASONE
     Dosage: 12 MG IM WITH A REPEATED DOSE AT 24 H (28 GW)
     Route: 064

REACTIONS (2)
  - Foetal exposure during pregnancy [Unknown]
  - Foetal non-stress test abnormal [Unknown]
